FAERS Safety Report 5242146-4 (Version None)
Quarter: 2007Q1

REPORT INFORMATION
  Report Type: 
  Country: None (occurrence: None)
  Receive Date: 20070213
  Receipt Date: 20070202
  Transmission Date: 20070707
  Serious: Yes (Other)
  Sender: FDA-Public Use
  Company Number: GXKR2007US01344

PATIENT
  Age: 65 Year
  Sex: Male

DRUGS (4)
  1. HYDROXYCHLOROQUINE SULFATE [Suspect]
     Indication: PAIN
     Dosage: 400 MG, QD
  2. PREDNISONE TAB [Concomitant]
  3. ASPIRIN [Concomitant]
  4. FLUOXETINE [Concomitant]

REACTIONS (4)
  - MYELODYSPLASTIC SYNDROME [None]
  - NORMOCHROMIC NORMOCYTIC ANAEMIA [None]
  - PANCYTOPENIA [None]
  - REFRACTORY ANAEMIA [None]
